FAERS Safety Report 6275381-7 (Version None)
Quarter: 2009Q3

REPORT INFORMATION
  Report Type: 
  Country: None (occurrence: None)
  Receive Date: 20090721
  Receipt Date: 20090708
  Transmission Date: 20100115
  Serious: Yes (Hospitalization)
  Sender: FDA-Public Use
  Company Number: ES-ELI_LILLY_AND_COMPANY-ES200905004874

PATIENT
  Age: 70 Year
  Sex: Female

DRUGS (6)
  1. FORTEO [Suspect]
     Indication: OSTEOPOROSIS
     Dosage: 20 UG, UNKNOWN
     Route: 058
     Dates: start: 20080804
  2. ENBREL [Concomitant]
     Indication: RHEUMATOID ARTHRITIS
     Dosage: UNK, UNKNOWN
     Route: 065
  3. BRONCHODIL [Concomitant]
     Dosage: UNK, UNKNOWN
     Route: 065
  4. ARAVA [Concomitant]
     Indication: OSTEOPOROSIS
     Dosage: UNK, UNKNOWN
     Route: 065
  5. SERTRALINA [Concomitant]
     Indication: DEPRESSION
     Dosage: UNK, UNKNOWN
     Route: 065
  6. IDAPTAN [Concomitant]
     Dosage: UNK, UNKNOWN
     Route: 065

REACTIONS (1)
  - GASTROINTESTINAL VIRAL INFECTION [None]
